FAERS Safety Report 5084077-9 (Version None)
Quarter: 2006Q3

REPORT INFORMATION
  Report Type: 
  Country: None (occurrence: None)
  Receive Date: 20060821
  Receipt Date: 20060811
  Transmission Date: 20061208
  Serious: Yes (Other)
  Sender: FDA-Public Use
  Company Number: US-JNJFOC-20060600898

PATIENT
  Age: 61 Year
  Sex: Female
  Weight: 83.92 kg

DRUGS (8)
  1. REMICADE [Suspect]
     Route: 042
  2. REMICADE [Suspect]
     Indication: PSORIATIC ARTHROPATHY
     Route: 042
  3. POTASSIUM [Concomitant]
  4. DARVOCET-N 100 [Concomitant]
  5. MOBIC [Concomitant]
  6. MODURETIC 5-50 [Concomitant]
  7. MICRONASE [Concomitant]
  8. GLUCOPHAGE [Concomitant]

REACTIONS (3)
  - ABDOMINAL PAIN UPPER [None]
  - PAIN IN EXTREMITY [None]
  - VISION BLURRED [None]
